FAERS Safety Report 7956119-1 (Version None)
Quarter: 2011Q4

REPORT INFORMATION
  Report Type: 
  Country: None (occurrence: None)
  Receive Date: 20111205
  Receipt Date: 20111121
  Transmission Date: 20120403
  Serious: Yes (Other)
  Sender: FDA-Public Use
  Company Number: GB-ELI_LILLY_AND_COMPANY-GB201111006653

PATIENT
  Age: 23 Year
  Sex: Male
  Weight: 65 kg

DRUGS (3)
  1. CIRCADIN [Concomitant]
     Dosage: 2 MG, UNK
  2. ATOMOXETINE HYDROCHLORIDE [Suspect]
     Dosage: 18 MG, UNK
     Route: 048
     Dates: start: 20110415, end: 20110426
  3. CITALOPRAM [Concomitant]
     Dosage: 20 MG, UNK

REACTIONS (4)
  - FACIAL PARESIS [None]
  - INTENTIONAL OVERDOSE [None]
  - TRANSIENT ISCHAEMIC ATTACK [None]
  - SUICIDAL IDEATION [None]
